FAERS Safety Report 9614443 (Version 1)
Quarter: 2013Q4

REPORT INFORMATION
  Report Type: Spontaneous
  Country: US (occurrence: None)
  Receive Date: 20131009
  Receipt Date: 20131009
  Transmission Date: 20140711
  Serious: No
  Sender: FDA-Public Use
  Company Number: None

PATIENT
  Age: 56 Year
  Sex: Male

DRUGS (1)
  1. ZYTIGA [Suspect]
     Indication: PROSTATE CANCER
     Dosage: 4 TABS, QD, ORAL
     Route: 048
     Dates: start: 20110624, end: 20131008

REACTIONS (6)
  - Pain in extremity [None]
  - Dizziness [None]
  - Vertigo [None]
  - Decreased appetite [None]
  - Mood altered [None]
  - Headache [None]
